FAERS Safety Report 7821149-7 (Version None)
Quarter: 2011Q4

REPORT INFORMATION
  Report Type: 
  Country: None (occurrence: None)
  Receive Date: 20111018
  Receipt Date: 20111004
  Transmission Date: 20120403
  Serious: Yes (Death, Other)
  Sender: FDA-Public Use
  Company Number: FR-ROCHE-1003546

PATIENT
  Sex: Male

DRUGS (16)
  1. RANIBIZUMAB [Suspect]
     Route: 050
     Dates: start: 20090216
  2. RANIBIZUMAB [Suspect]
     Route: 050
     Dates: start: 20100222
  3. RANIBIZUMAB [Suspect]
     Route: 050
     Dates: start: 20091109
  4. RANIBIZUMAB [Suspect]
     Route: 050
     Dates: start: 20100816
  5. NUTRITIONAL SUPPLEMENTS (NOS) [Concomitant]
  6. RANIBIZUMAB [Suspect]
     Indication: AGE-RELATED MACULAR DEGENERATION
     Route: 050
     Dates: start: 20070925
  7. RANIBIZUMAB [Suspect]
     Route: 050
     Dates: start: 20080903
  8. RANIBIZUMAB [Suspect]
     Route: 050
     Dates: start: 20081013
  9. RANIBIZUMAB [Suspect]
     Route: 050
     Dates: start: 20081215
  10. RANIBIZUMAB [Suspect]
     Route: 050
     Dates: start: 20090504
  11. RANIBIZUMAB [Suspect]
     Route: 050
     Dates: start: 20100426
  12. RANIBIZUMAB [Suspect]
     Route: 050
     Dates: start: 20100712
  13. FUROSEMIDE [Concomitant]
  14. REPAGLINIDE [Concomitant]
  15. RANIBIZUMAB [Suspect]
     Route: 050
     Dates: start: 20090824
  16. URAPIDIL [Concomitant]

REACTIONS (2)
  - DIABETIC RETINOPATHY [None]
  - DEATH [None]
